FAERS Safety Report 8309499-1 (Version None)
Quarter: 2012Q2

REPORT INFORMATION
  Report Type: 
  Country: None (occurrence: None)
  Receive Date: 20120425
  Receipt Date: 20120423
  Transmission Date: 20120825
  Serious: No
  Sender: FDA-Public Use
  Company Number: US-PFIZER INC-2012100727

PATIENT
  Sex: Female

DRUGS (6)
  1. CHANTIX [Suspect]
     Indication: SMOKING CESSATION THERAPY
     Dosage: 0.5 MG, 1X/DAY
     Route: 048
     Dates: start: 20120220
  2. IBUPROFEN [Suspect]
     Indication: PERIODONTAL DISEASE
     Dosage: UNK
     Dates: start: 20120420, end: 20120421
  3. VICODIN [Suspect]
     Indication: PERIODONTAL DISEASE
     Dosage: UNK
     Dates: start: 20120420, end: 20120421
  4. CHANTIX [Suspect]
     Dosage: 1 MG, 2X/DAY
     Route: 048
     Dates: end: 20120421
  5. VALIUM [Suspect]
     Indication: PERIODONTAL DISEASE
     Dosage: UNK
     Dates: start: 20120420, end: 20120421
  6. AUGMENTIN [Suspect]
     Indication: PERIODONTAL DISEASE
     Dosage: UNK
     Dates: start: 20120420, end: 20120421

REACTIONS (3)
  - MALAISE [None]
  - VOMITING [None]
  - PERIODONTAL DISEASE [None]
